FAERS Safety Report 5104691-1 (Version None)
Quarter: 2006Q3

REPORT INFORMATION
  Report Type: 
  Country: None (occurrence: None)
  Receive Date: 20060911
  Receipt Date: 20060911
  Transmission Date: 20061208
  Serious: Yes (Hospitalization)
  Sender: FDA-Public Use
  Company Number: None

PATIENT
  Age: 53 Year
  Sex: Male
  Weight: 108.4097 kg

DRUGS (1)
  1. LISINOPRIL [Suspect]
     Indication: HYPERTENSION
     Dosage: 40 MG   ONCE DAILY   PO
     Route: 048
     Dates: start: 20040723, end: 20060720

REACTIONS (2)
  - ANGIONEUROTIC OEDEMA [None]
  - TINEA INFECTION [None]
